FAERS Safety Report 12459717 (Version 2)
Quarter: 2017Q2

REPORT INFORMATION
  Report Type: Spontaneous
  Country: US (occurrence: US)
  Receive Date: 20160613
  Receipt Date: 20170606
  Transmission Date: 20170830
  Serious: Yes (Hospitalization, Other)
  Sender: FDA-Public Use
  Company Number: US-UPSHER-SMITH LABORATORIES, INC.-15001590

PATIENT
  Age: 83 Year
  Sex: Female

DRUGS (11)
  1. BABY ASPIRIN [Concomitant]
     Active Substance: ASPIRIN
     Dosage: UNK
  2. ZETIA [Concomitant]
     Active Substance: EZETIMIBE
     Indication: BLOOD CHOLESTEROL INCREASED
     Dosage: UNK
  3. PACERONE [Suspect]
     Active Substance: AMIODARONE HYDROCHLORIDE
     Dosage: 200 MG, QD
     Route: 048
     Dates: start: 20140929, end: 20150511
  4. PACERONE [Suspect]
     Active Substance: AMIODARONE HYDROCHLORIDE
     Dosage: 400 MG, 2X/DAY
  5. ALLOPURINOL. [Concomitant]
     Active Substance: ALLOPURINOL
     Indication: GOUT
     Dosage: UNK
  6. AMLODIPINE BESYLATE. [Concomitant]
     Active Substance: AMLODIPINE BESYLATE
     Dosage: UNK
  7. PACERONE [Suspect]
     Active Substance: AMIODARONE HYDROCHLORIDE
     Dosage: 400 MG, QD
     Route: 048
     Dates: start: 20140829, end: 20140928
  8. PACERONE [Suspect]
     Active Substance: AMIODARONE HYDROCHLORIDE
     Dosage: 200 MG, 2X/DAY
  9. LASIX [Concomitant]
     Active Substance: FUROSEMIDE
     Dosage: UNK
  10. UNSPECIFIED OPHTHALMOLOGICALS [Concomitant]
     Indication: DRY EYE
     Dosage: UNK
  11. METOPROLOL. [Concomitant]
     Active Substance: METOPROLOL
     Dosage: UNK

REACTIONS (21)
  - Carpal tunnel syndrome [Recovering/Resolving]
  - Memory impairment [Recovering/Resolving]
  - Fatigue [Unknown]
  - Hypothyroidism [Not Recovered/Not Resolved]
  - Palpitations [Unknown]
  - Cough [Not Recovered/Not Resolved]
  - Eye disorder [Unknown]
  - Dyspnoea [Recovering/Resolving]
  - Vision blurred [Unknown]
  - Malaise [Unknown]
  - Chest pain [Unknown]
  - Insomnia [Recovering/Resolving]
  - Nightmare [Recovered/Resolved]
  - Skin discolouration [Not Recovered/Not Resolved]
  - Hallucination, auditory [Recovered/Resolved]
  - Hypoaesthesia [Recovering/Resolving]
  - Fluid retention [Unknown]
  - Chest discomfort [Unknown]
  - Neuropathy peripheral [Recovering/Resolving]
  - Dizziness [Recovered/Resolved]
  - Underdose [Unknown]

NARRATIVE: CASE EVENT DATE: 2014
